FAERS Safety Report 7211424-1 (Version None)
Quarter: 2011Q1

REPORT INFORMATION
  Report Type: 
  Country: None (occurrence: None)
  Receive Date: 20110105
  Receipt Date: 20101228
  Transmission Date: 20110831
  Serious: Yes (Hospitalization, Disabling, Other)
  Sender: FDA-Public Use
  Company Number: US-MILLENNIUM PHARMACEUTICALS, INC.-2010-05916

PATIENT
  Sex: Female
  Weight: 72.562 kg

DRUGS (8)
  1. RITUXAN [Suspect]
     Dosage: UNK
     Dates: start: 20100101
  2. VELCADE [Suspect]
     Dosage: UNK
     Dates: start: 20101001
  3. PREDNISONE [Concomitant]
     Indication: PRODUCT USED FOR UNKNOWN INDICATION
     Dosage: 10 MG, QD
  4. MILNACIPRAN [Concomitant]
     Indication: PRODUCT USED FOR UNKNOWN INDICATION
     Dosage: 50 MG, BID
  5. GABAPENTIN [Concomitant]
     Indication: NEUROPATHY PERIPHERAL
     Dosage: 600 MG, BID
  6. GLIMEPIRIDE [Concomitant]
     Indication: PRODUCT USED FOR UNKNOWN INDICATION
     Dosage: 4 MG, QD
  7. ACYCLOVIR [Concomitant]
     Indication: PRODUCT USED FOR UNKNOWN INDICATION
  8. LORTAB [Concomitant]
     Indication: PRODUCT USED FOR UNKNOWN INDICATION
     Dosage: UNK

REACTIONS (8)
  - SCIATIC NERVE INJURY [None]
  - NEUROPATHY PERIPHERAL [None]
  - PNEUMONIA [None]
  - PYREXIA [None]
  - HERPES VIRUS INFECTION [None]
  - PAIN IN EXTREMITY [None]
  - JOINT SWELLING [None]
  - LOSS OF CONSCIOUSNESS [None]
